FAERS Safety Report 5000481-9 (Version None)
Quarter: 2006Q2

REPORT INFORMATION
  Report Type: 
  Country: None (occurrence: None)
  Receive Date: 20060512
  Receipt Date: 20060504
  Transmission Date: 20061013
  Serious: Yes (Other)
  Sender: FDA-Public Use
  Company Number: US-JNJFOC-20060501251

PATIENT
  Sex: Female

DRUGS (14)
  1. REMICADE [Suspect]
     Indication: RHEUMATOID ARTHRITIS
     Route: 042
  2. ACETAMINOPHEN [Concomitant]
  3. ALPRAZOLAM [Concomitant]
  4. ASPIRIN [Concomitant]
  5. CELEBREX [Concomitant]
  6. FOLIC ACID [Concomitant]
  7. PREDNISONE TAB [Concomitant]
  8. SYNTHROID [Concomitant]
  9. ZOLOFT [Concomitant]
  10. ZYRTEC [Concomitant]
  11. METHOTREXATE [Concomitant]
  12. LOPID [Concomitant]
  13. CALCIUM+D [Concomitant]
  14. CALCIUM+D [Concomitant]

REACTIONS (2)
  - BASAL CELL CARCINOMA [None]
  - SQUAMOUS CELL CARCINOMA [None]
